FAERS Safety Report 9538968 (Version 1)
Quarter: 2013Q2

REPORT INFORMATION
  Report Type: Spontaneous
  Country: US (occurrence: None)
  Receive Date: 20130517
  Receipt Date: 20130517
  Transmission Date: 20140414
  Serious: Yes (Other)
  Sender: FDA-Public Use
  Company Number: 1000042634

PATIENT
  Age: 56 Year
  Sex: Male
  Weight: 139 kg

DRUGS (5)
  1. VIIBRYD [Suspect]
     Indication: BIPOLAR DISORDER
     Route: 048
     Dates: start: 201208
  2. LAMICTAL (LAMOTRIGINE) [Concomitant]
  3. XANAX (ALPRAZOLAM) [Concomitant]
  4. NEURONTIN (GABAPENTIN) [Concomitant]
  5. AMBIEN (ZOLPIDEM TARTRATE) [Concomitant]

REACTIONS (6)
  - Food craving [None]
  - Weight increased [None]
  - Somnolence [None]
  - Libido decreased [None]
  - Nightmare [None]
  - Off label use [None]
